FAERS Safety Report 4632949-9 (Version None)
Quarter: 2005Q2

REPORT INFORMATION
  Report Type: 
  Country: None (occurrence: None)
  Receive Date: 20050412
  Receipt Date: 20050404
  Transmission Date: 20051028
  Serious: Yes (Other)
  Sender: FDA-Public Use
  Company Number: US-JNJFOC-20050400725

PATIENT
  Age: 54 Year
  Sex: Male

DRUGS (13)
  1. CYCLOBENZAPRINE HCL [Suspect]
     Indication: PAIN
     Dosage: 60-80 MG/DAY
  2. NORTRIPTYLINE HCL [Interacting]
     Indication: INSOMNIA
  3. NORTRIPTYLINE HCL [Interacting]
     Indication: DEPRESSION
  4. NORTRIPTYLINE HCL [Interacting]
     Indication: PAIN
  5. DIVALPROEX SODIUM [Concomitant]
     Dosage: 500-750 MG/DAY
  6. SUMATRIPTAN [Concomitant]
  7. GABAPENTIN [Concomitant]
     Dosage: UP TO 1200 MG, TID
  8. MECLIZINE [Concomitant]
  9. FUROSEMIDE [Concomitant]
     Dosage: 20-40 MG/DAY
  10. ATENOLOL [Concomitant]
     Dosage: UP TO 100 MG/DAY
  11. OXYCODONE AND ACETAMINOPHEN [Concomitant]
  12. OXYCODONE AND ACETAMINOPHEN [Concomitant]
     Dosage: UP TO 10 MG, TID, PRN
  13. CITALOPRAM HYDROBROMIDE [Concomitant]

REACTIONS (20)
  - ANXIETY [None]
  - ARRHYTHMIA [None]
  - CAROTID ARTERY DISEASE [None]
  - CHEST DISCOMFORT [None]
  - CHEST PAIN [None]
  - CIRCULATORY COLLAPSE [None]
  - CONVULSION [None]
  - DIZZINESS [None]
  - DRUG INTERACTION [None]
  - DRUG LEVEL ABOVE THERAPEUTIC [None]
  - DRUG LEVEL INCREASED [None]
  - FACTITIOUS DISORDER [None]
  - GASTROOESOPHAGEAL REFLUX DISEASE [None]
  - MYOCARDIAL ISCHAEMIA [None]
  - OVERDOSE [None]
  - PANIC DISORDER [None]
  - SINUS TACHYCARDIA [None]
  - SOMATISATION DISORDER [None]
  - SYNCOPE [None]
  - VERTEBROBASILAR INSUFFICIENCY [None]
